FAERS Safety Report 6775431-5 (Version None)
Quarter: 2010Q2

REPORT INFORMATION
  Report Type: 
  Country: None (occurrence: None)
  Receive Date: 20100617
  Receipt Date: 20100604
  Transmission Date: 20101027
  Serious: Yes (Death, Life-Threatening)
  Sender: FDA-Public Use
  Company Number: US-MERCK-1006USA00935

PATIENT

DRUGS (2)
  1. ZOCOR [Suspect]
     Route: 048
  2. LOPID [Concomitant]
     Route: 065

REACTIONS (1)
  - RHABDOMYOLYSIS [None]
